FAERS Safety Report 9771287 (Version 1)
Quarter: 2013Q4

REPORT INFORMATION
  Report Type: Spontaneous
  Country: BR (occurrence: BR)
  Receive Date: 20131218
  Receipt Date: 20131218
  Transmission Date: 20140711
  Serious: Yes (Death, Hospitalization, Other)
  Sender: FDA-Public Use
  Company Number: BR-SPECTRUM PHARMACEUTICALS, INC.-13-F-BR-00323

PATIENT
  Age: 27 Year
  Sex: Female

DRUGS (3)
  1. FLUOROURACIL [Suspect]
     Indication: COLORECTAL CANCER METASTATIC
     Dosage: UNK
     Route: 042
  2. OXALIPLATIN [Suspect]
     Indication: COLORECTAL CANCER METASTATIC
     Dosage: UNK
     Route: 065
  3. LEUCOVORIN /00566701/ [Suspect]
     Indication: COLORECTAL CANCER METASTATIC
     Dosage: UNK
     Route: 065

REACTIONS (5)
  - Disease progression [Fatal]
  - Posterior reversible encephalopathy syndrome [Recovered/Resolved]
  - Convulsion [Recovered/Resolved]
  - Depressed level of consciousness [Recovered/Resolved]
  - Visual impairment [Recovered/Resolved]
